FAERS Safety Report 4319111-4 (Version None)
Quarter: 2004Q1

REPORT INFORMATION
  Report Type: 
  Country: None (occurrence: None)
  Receive Date: 20040318
  Receipt Date: 20040318
  Transmission Date: 20041129
  Serious: Yes (Life-Threatening)
  Sender: FDA-Public Use
  Company Number: None

PATIENT
  Age: 71 Year
  Sex: Male
  Weight: 70.7611 kg

DRUGS (1)
  1. ETANERCEPT 25 MG AMGEN [Suspect]
     Indication: PSORIATIC ARTHROPATHY
     Dosage: 25 MG TWICE WK SUBCUTANEOUS
     Route: 058
     Dates: start: 20000913, end: 20040316

REACTIONS (1)
  - CARCINOMA [None]
